FAERS Safety Report 7643756-7 (Version None)
Quarter: 2011Q3

REPORT INFORMATION
  Report Type: 
  Country: None (occurrence: None)
  Receive Date: 20110729
  Receipt Date: 20110722
  Transmission Date: 20111222
  Serious: Yes (Hospitalization)
  Sender: FDA-Public Use
  Company Number: US-US-EMD SERONO, INC.-7073185

PATIENT
  Sex: Female

DRUGS (2)
  1. REBIF [Suspect]
     Indication: MULTIPLE SCLEROSIS
     Route: 058
     Dates: start: 20040222, end: 20050801
  2. REBIF [Suspect]
     Route: 058
     Dates: start: 20060101

REACTIONS (7)
  - PROCEDURAL COMPLICATION [None]
  - THYROID FUNCTION TEST ABNORMAL [None]
  - MENORRHAGIA [None]
  - JOINT INJURY [None]
  - MULTIPLE SCLEROSIS [None]
  - COMPUTERISED TOMOGRAM ABNORMAL [None]
  - SEASONAL ALLERGY [None]
